FAERS Safety Report 6730266-4 (Version None)
Quarter: 2010Q2

REPORT INFORMATION
  Report Type: 
  Country: None (occurrence: None)
  Receive Date: 20100518
  Receipt Date: 20100506
  Transmission Date: 20101027
  Serious: Yes (Other)
  Sender: FDA-Public Use
  Company Number: JP-ROCHE-667636

PATIENT
  Age: 67 Year
  Sex: Male

DRUGS (5)
  1. BEVACIZUMAB [Suspect]
     Dosage: 1 MG, UNK
     Route: 031
  2. BEVACIZUMAB [Suspect]
     Route: 065
  3. LIDOCAINE HYDROCHLORIDE [Concomitant]
     Indication: PREMEDICATION
     Dosage: 4 %, UNK
  4. POVIDONE IODINE [Concomitant]
     Indication: PREMEDICATION
     Dosage: 0.625 %, UNK
  5. LEVOFLOXACIN [Concomitant]
     Indication: DRUG USE FOR UNKNOWN INDICATION

REACTIONS (1)
  - EYE INFLAMMATION [None]
